FAERS Safety Report 9528060 (Version 1)
Quarter: 2013Q3

REPORT INFORMATION
  Report Type: Spontaneous
  Country: CN (occurrence: CN)
  Receive Date: 20130917
  Receipt Date: 20130917
  Transmission Date: 20140515
  Serious: Yes (Other)
  Sender: FDA-Public Use
  Company Number: CN-JNJFOC-20130907083

PATIENT
  Sex: 0

DRUGS (10)
  1. TOPIRAMATE [Suspect]
     Indication: INFANTILE SPASMS
     Dosage: 25 TO 200 MG PER DAY (3.57 TO 20 MG/KG/DAY
     Route: 048
  2. TOPIRAMATE [Suspect]
     Indication: INFANTILE SPASMS
     Dosage: 0.5 TO 1 MG/KG/DAY
     Route: 048
  3. VALPROIC ACID [Suspect]
     Indication: INFANTILE SPASMS
     Route: 065
  4. CLONAZEPAM [Suspect]
     Indication: INFANTILE SPASMS
     Route: 065
  5. NITRAZEPAM [Suspect]
     Indication: INFANTILE SPASMS
     Route: 065
  6. PHENYTOIN [Suspect]
     Indication: INFANTILE SPASMS
     Route: 065
  7. CARBAMAZEPINE [Suspect]
     Indication: INFANTILE SPASMS
     Route: 065
  8. LEVETIRACETAM [Suspect]
     Indication: INFANTILE SPASMS
     Route: 065
  9. ACTH [Suspect]
     Indication: INFANTILE SPASMS
     Route: 065
  10. PREDNISONE [Suspect]
     Indication: INFANTILE SPASMS
     Route: 065

REACTIONS (12)
  - Developmental delay [Unknown]
  - Drug ineffective [Unknown]
  - Convulsion [Unknown]
  - Off label use [Unknown]
  - Decreased appetite [Unknown]
  - Somnolence [Unknown]
  - Hypohidrosis [Unknown]
  - Pyrexia [Unknown]
  - Fatigue [Unknown]
  - Insomnia [Unknown]
  - Vomiting [Unknown]
  - Temperature intolerance [Unknown]
